FAERS Safety Report 17987331 (Version 2)
Quarter: 2020Q3

REPORT INFORMATION
  Report Type: Spontaneous
  Country: BE (occurrence: BE)
  Receive Date: 20200707
  Receipt Date: 20200806
  Transmission Date: 20201103
  Serious: Yes (Other)
  Sender: FDA-Public Use
  Company Number: BE-009507513-2007BEL000972

PATIENT
  Age: 21 Year
  Sex: Female
  Weight: 62 kg

DRUGS (1)
  1. DIPROSONE [Suspect]
     Active Substance: BETAMETHASONE DIPROPIONATE
     Indication: ECZEMA
     Dosage: 1 DOSAGE FORM, PRN; REPORTED STRENGTH: 0.5 (MILLIGRAM/GRAM) MG/G; USE OF THIS MAGISTRAL PREPARATION
     Route: 003

REACTIONS (13)
  - Weight decreased [Not Recovered/Not Resolved]
  - Sensitive skin [Not Recovered/Not Resolved]
  - Dermatitis [Not Recovered/Not Resolved]
  - Alopecia [Not Recovered/Not Resolved]
  - Skin weeping [Not Recovered/Not Resolved]
  - Erythema [Not Recovered/Not Resolved]
  - Rebound effect [Not Recovered/Not Resolved]
  - Skin burning sensation [Not Recovered/Not Resolved]
  - Oedema [Not Recovered/Not Resolved]
  - Feeling cold [Not Recovered/Not Resolved]
  - Lymphadenopathy [Not Recovered/Not Resolved]
  - Eczema [Not Recovered/Not Resolved]
  - Multiple allergies [Not Recovered/Not Resolved]
